FAERS Safety Report 22049066 (Version 1)
Quarter: 2023Q1

REPORT INFORMATION
  Report Type: Spontaneous
  Country: US (occurrence: US)
  Receive Date: 20230301
  Receipt Date: 20230301
  Transmission Date: 20230417
  Serious: No
  Sender: FDA-Public Use
  Company Number: US-PFIZER INC-202300081868

PATIENT
  Age: 57 Year
  Sex: Female

DRUGS (1)
  1. IBRANCE [Suspect]
     Active Substance: PALBOCICLIB
     Dosage: CYCLIC (DAILY FOR 21 DAYS ON, 7 DAYS OFF)
     Dates: start: 202302

REACTIONS (2)
  - Blood creatinine increased [Unknown]
  - Glomerular filtration rate decreased [Unknown]
